FAERS Safety Report 10950869 (Version 6)
Quarter: 2016Q2

REPORT INFORMATION
  Report Type: Spontaneous
  Country: US (occurrence: US)
  Receive Date: 20150324
  Receipt Date: 20160616
  Transmission Date: 20160815
  Serious: Yes (Hospitalization, Congenital Anomaly, Other)
  Sender: FDA-Public Use
  Company Number: US-ELI_LILLY_AND_COMPANY-US201503006036

PATIENT
  Age: 11 Year
  Sex: Female

DRUGS (1)
  1. PROZAC [Suspect]
     Active Substance: FLUOXETINE HYDROCHLORIDE
     Indication: PRODUCT USED FOR UNKNOWN INDICATION
     Dosage: UNK, UNKNOWN
     Route: 065

REACTIONS (14)
  - Type 1 diabetes mellitus [Not Recovered/Not Resolved]
  - Tachycardia [Unknown]
  - Atelectasis [Unknown]
  - Pulmonary congestion [Unknown]
  - Tricuspid valve incompetence [Unknown]
  - Mitral valve incompetence [Unknown]
  - Patent ductus arteriosus [Unknown]
  - Dilatation ventricular [Unknown]
  - Diabetic ketoacidosis [Recovered/Resolved]
  - Pleural effusion [Unknown]
  - Foetal exposure during pregnancy [Recovered/Resolved]
  - Pulmonary valve incompetence [Unknown]
  - Aortic valve incompetence [Unknown]
  - Fallot^s tetralogy [Recovered/Resolved]

NARRATIVE: CASE EVENT DATE: 20090616
